FAERS Safety Report 20380645 (Version 7)
Quarter: 2022Q1

REPORT INFORMATION
  Report Type: Spontaneous
  Country: BE (occurrence: BE)
  Receive Date: 20220127
  Receipt Date: 20220329
  Transmission Date: 20220424
  Serious: Yes (Hospitalization, Other)
  Sender: FDA-Public Use
  Company Number: BE-Accord-251404

PATIENT
  Age: 84 Year
  Sex: Female
  Weight: 62.90 kg

DRUGS (29)
  1. GEMCITABINE HYDROCHLORIDE [Suspect]
     Active Substance: GEMCITABINE HYDROCHLORIDE
     Indication: Diffuse large B-cell lymphoma
     Dosage: 1Q2W
     Route: 042
     Dates: start: 20211115, end: 20211213
  2. OXALIPLATIN [Suspect]
     Active Substance: OXALIPLATIN
     Indication: Diffuse large B-cell lymphoma
     Dosage: 1Q2W
     Route: 042
     Dates: start: 20211115, end: 20211213
  3. RITUXIMAB [Suspect]
     Active Substance: RITUXIMAB
     Indication: Diffuse large B-cell lymphoma
     Dosage: 1Q2W
     Route: 042
     Dates: start: 20211115, end: 20211213
  4. SOLU-MEDROL [Concomitant]
     Active Substance: METHYLPREDNISOLONE SODIUM SUCCINATE
     Route: 042
     Dates: start: 20211115
  5. ALDACTONE [Concomitant]
     Active Substance: SPIRONOLACTONE
     Dates: start: 20201219, end: 20211115
  6. ASPIRIN [Concomitant]
     Active Substance: ASPIRIN
     Dates: start: 20120214
  7. ATORVASTATIN CALCIUM [Concomitant]
     Active Substance: ATORVASTATIN CALCIUM
     Dates: start: 20200824
  8. DAFALGAN [Concomitant]
     Active Substance: ACETAMINOPHEN
     Dates: start: 20211115
  9. ALIZAPRIDE HYDROCHLORIDE [Concomitant]
     Active Substance: ALIZAPRIDE HYDROCHLORIDE
     Dosage: DOSE: 150 MG
     Dates: start: 20211117
  10. METFORMIN HYDROCHLORIDE [Concomitant]
     Active Substance: METFORMIN HYDROCHLORIDE
     Dates: start: 20210813
  11. MINITRAN [Concomitant]
     Active Substance: NITROGLYCERIN
     Dates: start: 20120214
  12. MOVICOL [Concomitant]
     Active Substance: POLYETHYLENE GLYCOL 3350\POTASSIUM CHLORIDE\SODIUM BICARBONATE\SODIUM CHLORIDE
     Dates: start: 20200928
  13. NEULASTA [Concomitant]
     Active Substance: PEGFILGRASTIM
     Dates: start: 20211116
  14. Nebivolol hydrochloride, Hydrochlorothiazide [Concomitant]
     Dates: start: 20201211
  15. NEBIVOLOL [Concomitant]
     Active Substance: NEBIVOLOL
     Dates: start: 20211115
  16. PALONOSETRON [Concomitant]
     Active Substance: PALONOSETRON
     Dates: start: 20211115
  17. PANTOMED [Concomitant]
     Indication: Gastric ulcer
     Dates: start: 20211229
  18. MAGNESIUM [Concomitant]
     Active Substance: MAGNESIUM
     Dates: start: 20210611
  19. MEDICA [Concomitant]
     Dates: start: 20211230
  20. ZYRTEC [Concomitant]
     Active Substance: CETIRIZINE HYDROCHLORIDE
     Dates: start: 20211115
  21. FOLIC ACID [Concomitant]
     Active Substance: FOLIC ACID
     Dates: start: 20211231
  22. PRIVIGEN [Concomitant]
     Active Substance: HUMAN IMMUNOGLOBULIN G
     Dates: start: 20220107, end: 20220201
  23. TEMESTA [Concomitant]
     Dates: start: 20220104, end: 20220105
  24. MIRTAZAPINE [Concomitant]
     Active Substance: MIRTAZAPINE
     Dates: start: 20211215, end: 20220131
  25. TOULARYNX DEXTROMETHORPHAN [Concomitant]
     Dates: start: 20220102
  26. IMODIUM [Concomitant]
     Active Substance: LOPERAMIDE HYDROCHLORIDE
     Dates: start: 20220118
  27. MAGNETOP [Concomitant]
     Dates: start: 20220202, end: 20220204
  28. REMERGON [Concomitant]
     Active Substance: MIRTAZAPINE
     Dates: start: 20220201, end: 20220203
  29. ULTRA K [Concomitant]
     Dates: start: 20220201, end: 20220203

REACTIONS (3)
  - Gastric ulcer [Not Recovered/Not Resolved]
  - Off label use [Unknown]
  - Pneumonia [Recovered/Resolved]

NARRATIVE: CASE EVENT DATE: 20211228
